FAERS Safety Report 23960926 (Version 3)
Quarter: 2024Q4

REPORT INFORMATION
  Report Type: Report from Study
  Country: IT (occurrence: IT)
  Receive Date: 20240611
  Receipt Date: 20241108
  Transmission Date: 20250114
  Serious: Yes (Other)
  Sender: NOVARTIS
  Company Number: IT-002147023-NVSC2023IT192146

PATIENT
  Age: 49 Year
  Sex: Female

DRUGS (6)
  1. MAYZENT [Suspect]
     Active Substance: SIPONIMOD
     Indication: Multiple sclerosis
     Dosage: 2 MG
     Route: 048
     Dates: start: 20221110
  2. PREGABALIN EG [Concomitant]
     Indication: Paraesthesia
     Dosage: 100 MG
     Route: 048
     Dates: start: 20220901
  3. VENLAFAXINE HYDROCHLORIDE [Concomitant]
     Active Substance: VENLAFAXINE HYDROCHLORIDE
     Indication: Depression
     Dosage: 75 MG
     Route: 048
     Dates: start: 2019
  4. RAMIPRIL [Concomitant]
     Active Substance: RAMIPRIL
     Indication: Hypertension
     Dosage: 5 MG
     Route: 048
     Dates: start: 202101
  5. AMLODIPINA EG [Concomitant]
     Indication: Hypertension
     Dosage: 5 MG
     Route: 048
     Dates: start: 20210921
  6. ACETAMINOPHEN\CODEINE PHOSPHATE [Concomitant]
     Active Substance: ACETAMINOPHEN\CODEINE PHOSPHATE
     Indication: Pain
     Dosage: UNK (500/30 MG)
     Route: 048
     Dates: start: 2022

REACTIONS (2)
  - Basal cell carcinoma [Recovered/Resolved]
  - Lymphopenia [Recovered/Resolved]

NARRATIVE: CASE EVENT DATE: 20230113
